FAERS Safety Report 9816589 (Version 3)
Quarter: 2014Q1

REPORT INFORMATION
  Report Type: Spontaneous
  Country: US (occurrence: US)
  Receive Date: 20140114
  Receipt Date: 20140214
  Transmission Date: 20141002
  Serious: Yes (Death, Hospitalization)
  Sender: FDA-Public Use
  Company Number: US-PFIZER INC-2014007512

PATIENT
  Age: 72 Year
  Sex: Female
  Weight: 85.17 kg

DRUGS (22)
  1. REVATIO [Suspect]
     Indication: PULMONARY ARTERIAL HYPERTENSION
     Dosage: 20 MG, 3X/DAY
     Route: 048
  2. PREDNISONE [Concomitant]
     Dosage: 5 MG, DAILY
  3. PREDNISONE [Concomitant]
     Dosage: 20 MG, UNK
  4. TRACLEER [Concomitant]
     Dosage: 125 MG, 2X/DAY (TWICE DAILY)
     Route: 048
  5. LISINOPRIL [Concomitant]
     Dosage: 10 MG, DAILY
  6. LISINOPRIL [Concomitant]
     Dosage: 20 MG, 2X/DAY (2 TIMES DAILY)
     Route: 048
  7. CETIRIZINE [Concomitant]
     Dosage: 10 MG, DAILY
  8. SPIRIVA [Concomitant]
     Dosage: 1 18 UG CAPSULE 1 PUFF DAILY
  9. ACETAMINOPHEN [Concomitant]
     Indication: PAIN
     Dosage: 325 MG, AS NEEDED (EVERY 4 HOURS AS NEEDED)
     Route: 048
  10. DILTIAZEM CD [Concomitant]
     Dosage: 180 MG, DAILY
     Route: 048
  11. FAMOTIDINE [Concomitant]
     Dosage: 20 MG, 2X/DAY (1 TAB 2 TIMES DAILY)
     Route: 048
  12. FLUTICASONE-SALMETEROL [Concomitant]
     Dosage: 1 DF, 2X/DAY ((100-50 MCG/DOSE, 1 PUFF BY INHALATION EVERY 12 HOURS)
  13. LEVALBUTEROL [Concomitant]
     Dosage: 1.25 MG/0.5 ML, 1X/DAY (BY INHALATION ONE TIME ONLY FOR 1 DOSE)
  14. METHYLPREDNISOLONE SODIUM SUCCINATE [Concomitant]
     Dosage: 60 MG, 2X/DAY (EVERY 12 HOURS)
     Route: 042
  15. MONTELUKAST [Concomitant]
     Dosage: 10 MG, DAILY
     Route: 048
  16. K-DUR [Concomitant]
     Dosage: 20 MEQ, DAILY
     Route: 048
  17. BUDESONIDE/FORMOTEROL FUMARATE [Concomitant]
     Dosage: (80-4.5 MCG/ACTUATION)
  18. CALTRATE 600 [Concomitant]
     Dosage: 1 DF, 2X/DAY
     Route: 048
  19. IPRATROPIUM-ALBUTEROL [Concomitant]
     Dosage: (0.5 MG-3 MG(2.5MG BASE)/3 ML)
  20. NARCAN [Concomitant]
     Dosage: UNK
  21. ZOFRAN [Concomitant]
     Dosage: UNK
  22. OCEAN SPRAY [Concomitant]
     Dosage: UNK

REACTIONS (1)
  - Pulmonary hypertension [Fatal]
